FAERS Safety Report 7875869-9 (Version None)
Quarter: 2011Q4

REPORT INFORMATION
  Report Type: 
  Country: None (occurrence: None)
  Receive Date: 20111031
  Receipt Date: 20111021
  Transmission Date: 20120403
  Serious: Yes (Hospitalization, Other)
  Sender: FDA-Public Use
  Company Number: DE-ROCHE-649898

PATIENT
  Sex: Female
  Weight: 78 kg

DRUGS (2)
  1. TAXOL [Concomitant]
     Indication: BREAST CANCER
     Dosage: APPLICATION ON 25-JUN-2009 AND ON 7-JUL-2009, LOW DOSE
     Route: 042
  2. AVASTIN [Suspect]
     Indication: BREAST CANCER
     Dosage: APPLICATION ON 25-JUN-2009 AND ON 9-JUL-2009
     Route: 042

REACTIONS (4)
  - OESOPHAGEAL ULCER [None]
  - HEMIPARESIS [None]
  - CEREBRAL INFARCTION [None]
  - CONFUSIONAL STATE [None]
